FAERS Safety Report 10088057 (Version 2)
Quarter: 2014Q2

REPORT INFORMATION
  Report Type: Spontaneous
  Country: US (occurrence: US)
  Receive Date: 20140421
  Receipt Date: 20140617
  Transmission Date: 20141212
  Serious: Yes (Hospitalization)
  Sender: FDA-Public Use
  Company Number: 2014SP002051

PATIENT
  Age: 43 Year
  Sex: Female
  Weight: 87 kg

DRUGS (13)
  1. CYTARABINE [Suspect]
     Indication: ACUTE MYELOID LEUKAEMIA
     Route: 058
  2. ATENOLOL [Concomitant]
     Indication: HYPERTENSION
  3. PAXIL [Concomitant]
     Indication: DEPRESSION
  4. LORAZEPAM [Concomitant]
     Indication: ANXIETY
  5. AMITRIPTYLINE [Concomitant]
     Indication: INSOMNIA
  6. OXYCODONE [Concomitant]
     Indication: PAIN
  7. IBUPROFENE [Concomitant]
     Indication: PAIN
  8. DOXYCYCLINE [Concomitant]
     Indication: PROPHYLAXIS
  9. BACLOFEN [Concomitant]
     Indication: HEADACHE
  10. BACLOFEN [Concomitant]
     Indication: BACK PAIN
  11. BACLOFEN [Concomitant]
     Indication: NECK PAIN
  12. SIMVASTATIN [Concomitant]
     Indication: HYPERCHOLESTEROLAEMIA
  13. LISINOPRIL [Concomitant]
     Indication: HYPERTENSION

REACTIONS (6)
  - Atelectasis [Unknown]
  - Pneumonia aspiration [Unknown]
  - Pneumonia [Unknown]
  - Febrile neutropenia [Recovered/Resolved with Sequelae]
  - Tachycardia [Unknown]
  - Vaginal haemorrhage [Unknown]
